FAERS Safety Report 14134148 (Version 1)
Quarter: 2017Q4

REPORT INFORMATION
  Report Type: Spontaneous
  Country: US (occurrence: None)
  Receive Date: 20171027
  Receipt Date: 20171027
  Transmission Date: 20180321
  Serious: No
  Sender: FDA-Public Use
  Company Number: None

PATIENT
  Age: 67 Year
  Sex: Male

DRUGS (1)
  1. MYCOPHENOLATE MOF TAB 500MG [Suspect]
     Active Substance: MYCOPHENOLATE MOFETIL
     Indication: PEMPHIGOID
     Route: 048
     Dates: start: 20171004, end: 20171019

REACTIONS (3)
  - Bloody discharge [None]
  - Blister rupture [None]
  - Drug ineffective [None]

NARRATIVE: CASE EVENT DATE: 20171026
